FAERS Safety Report 9002745 (Version 1)
Quarter: 2013Q1

REPORT INFORMATION
  Report Type: Spontaneous
  Country: US (occurrence: US)
  Receive Date: 20130107
  Receipt Date: 20130107
  Transmission Date: 20140127
  Serious: No
  Sender: FDA-Public Use
  Company Number: US-GLAXOSMITHKLINE-A0998026A

PATIENT
  Age: 39 Year
  Sex: Female
  Weight: 59.9 kg

DRUGS (8)
  1. BENLYSTA [Suspect]
     Indication: SYSTEMIC LUPUS ERYTHEMATOSUS
     Dosage: 10MGK MONTHLY
     Route: 042
     Dates: start: 20110815
  2. IMURAN [Concomitant]
  3. KLONOPIN [Concomitant]
  4. PREDNISONE [Concomitant]
  5. NEURONTIN [Concomitant]
  6. ZOLOFT [Concomitant]
  7. HYDROXYCHLOROQUINE [Concomitant]
  8. METHADONE [Concomitant]

REACTIONS (1)
  - Breast mass [Not Recovered/Not Resolved]
